FAERS Safety Report 8270060-9 (Version None)
Quarter: 2012Q2

REPORT INFORMATION
  Report Type: 
  Country: None (occurrence: None)
  Receive Date: 20120405
  Receipt Date: 20120323
  Transmission Date: 20120825
  Serious: Yes (Hospitalization, Other)
  Sender: FDA-Public Use
  Company Number: JPI-P-002165

PATIENT
  Age: 15 Year
  Sex: Male

DRUGS (24)
  1. MAZINDOL [Suspect]
     Indication: SOMNOLENCE
     Dosage: ORAL
     Route: 048
     Dates: start: 20050101, end: 20070801
  2. MAZINDOL [Suspect]
     Indication: CATAPLEXY
     Dosage: ORAL
     Route: 048
     Dates: start: 20050101, end: 20070801
  3. XYREM [Suspect]
     Indication: CATAPLEXY
     Dosage: SEE IMAGE
     Route: 048
     Dates: start: 20070808, end: 20070814
  4. XYREM [Suspect]
     Indication: SOMNOLENCE
     Dosage: SEE IMAGE
     Route: 048
     Dates: start: 20070808, end: 20070814
  5. XYREM [Suspect]
     Indication: CATAPLEXY
     Dosage: SEE IMAGE
     Route: 048
     Dates: start: 20070819, end: 20070821
  6. XYREM [Suspect]
     Indication: SOMNOLENCE
     Dosage: SEE IMAGE
     Route: 048
     Dates: start: 20070819, end: 20070821
  7. XYREM [Suspect]
     Indication: CATAPLEXY
     Dosage: SEE IMAGE
     Route: 048
     Dates: start: 20081006, end: 20081007
  8. XYREM [Suspect]
     Indication: SOMNOLENCE
     Dosage: SEE IMAGE
     Route: 048
     Dates: start: 20081006, end: 20081007
  9. XYREM [Suspect]
     Indication: CATAPLEXY
     Dosage: SEE IMAGE
     Route: 048
     Dates: start: 20070815, end: 20070818
  10. XYREM [Suspect]
     Indication: SOMNOLENCE
     Dosage: SEE IMAGE
     Route: 048
     Dates: start: 20070815, end: 20070818
  11. XYREM [Suspect]
     Indication: CATAPLEXY
     Dosage: SEE IMAGE
     Route: 048
     Dates: start: 20070826, end: 20070917
  12. XYREM [Suspect]
     Indication: SOMNOLENCE
     Dosage: SEE IMAGE
     Route: 048
     Dates: start: 20070826, end: 20070917
  13. XYREM [Suspect]
     Indication: CATAPLEXY
     Dosage: SEE IMAGE
     Route: 048
     Dates: start: 20070918
  14. XYREM [Suspect]
     Indication: SOMNOLENCE
     Dosage: SEE IMAGE
     Route: 048
     Dates: start: 20070918
  15. XYREM [Suspect]
     Indication: CATAPLEXY
     Dosage: SEE IMAGE
     Route: 048
     Dates: start: 20080101, end: 20081005
  16. XYREM [Suspect]
     Indication: SOMNOLENCE
     Dosage: SEE IMAGE
     Route: 048
     Dates: start: 20080101, end: 20081005
  17. XYREM [Suspect]
     Indication: CATAPLEXY
     Dosage: SEE IMAGE
     Route: 048
     Dates: start: 20070822, end: 20070825
  18. XYREM [Suspect]
     Indication: SOMNOLENCE
     Dosage: SEE IMAGE
     Route: 048
     Dates: start: 20070822, end: 20070825
  19. XYREM [Suspect]
     Indication: CATAPLEXY
     Dosage: SEE IMAGE
     Route: 048
     Dates: start: 20070802, end: 20070807
  20. XYREM [Suspect]
     Indication: SOMNOLENCE
     Dosage: SEE IMAGE
     Route: 048
     Dates: start: 20070802, end: 20070807
  21. VENLAFAXINE HYDROCHLORIDE [Concomitant]
  22. METHYLPHENIDATE HYDROCHLORIDE SLOW RELEASE [Concomitant]
  23. METHYLPHENIDATE HCL [Concomitant]
  24. VERAPAMIL [Concomitant]

REACTIONS (7)
  - SLEEP APNOEA SYNDROME [None]
  - NIGHTMARE [None]
  - MUSCLE CONTRACTIONS INVOLUNTARY [None]
  - RESPIRATORY DEPRESSION [None]
  - RETROGRADE AMNESIA [None]
  - ACCIDENTAL OVERDOSE [None]
  - COMA [None]
